FAERS Safety Report 4593907-6 (Version None)
Quarter: 2005Q1

REPORT INFORMATION
  Report Type: 
  Country: None (occurrence: None)
  Receive Date: 20050301
  Receipt Date: 20050114
  Transmission Date: 20050727
  Serious: Yes (Other)
  Sender: FDA-Public Use
  Company Number: JP-MERCK-0501USA03207

PATIENT
  Age: 79 Year
  Sex: Male

DRUGS (11)
  1. PEPCID [Suspect]
     Route: 041
     Dates: start: 20050101
  2. MIDAZOLAM HCL [Suspect]
     Indication: SEDATION
     Route: 041
     Dates: start: 20050105, end: 20050112
  3. METHYLPREDNISOLONE SODIUM SUCCINATE [Concomitant]
     Route: 042
     Dates: start: 20050104, end: 20050106
  4. CARBENIN [Concomitant]
     Route: 041
     Dates: start: 20050104, end: 20050114
  5. BISOLVON [Concomitant]
     Route: 042
     Dates: start: 20050104, end: 20050106
  6. HANP [Concomitant]
     Route: 042
     Dates: start: 20050105, end: 20050107
  7. LASIX [Concomitant]
     Route: 042
     Dates: start: 20050105, end: 20050106
  8. RYTHMODAN [Concomitant]
     Route: 042
     Dates: start: 20050105, end: 20050105
  9. VASOLAN [Concomitant]
     Route: 042
     Dates: start: 20050105, end: 20050105
  10. HORIZON [Concomitant]
     Route: 042
     Dates: start: 20050105, end: 20050105
  11. PREDONINE [Concomitant]
     Route: 042
     Dates: start: 20050107, end: 20050118

REACTIONS (1)
  - RHABDOMYOLYSIS [None]
